FAERS Safety Report 5827582-7 (Version None)
Quarter: 2008Q3

REPORT INFORMATION
  Report Type: 
  Country: None (occurrence: None)
  Receive Date: 20080730
  Receipt Date: 20080729
  Transmission Date: 20090109
  Serious: Yes (Hospitalization)
  Sender: FDA-Public Use
  Company Number: JP-BOEHRINGER INGELHEIM GMBH, GERMANY-2008-DE-04008GD

PATIENT
  Age: 88 Year
  Sex: Female
  Weight: 43 kg

DRUGS (4)
  1. PERSANTINE [Suspect]
     Indication: ANTIPLATELET THERAPY
     Route: 048
  2. ASPIRIN [Suspect]
     Indication: ANTIPLATELET THERAPY
     Route: 048
  3. ISOSORBIDE DINITRATE [Concomitant]
     Route: 048
  4. VALSARTAN [Concomitant]
     Route: 048

REACTIONS (1)
  - EXTRADURAL HAEMATOMA [None]
